FAERS Safety Report 5825069-9 (Version None)
Quarter: 2008Q3

REPORT INFORMATION
  Report Type: 
  Country: None (occurrence: None)
  Receive Date: 20080729
  Receipt Date: 20080728
  Transmission Date: 20090109
  Serious: Yes (Hospitalization, Other)
  Sender: FDA-Public Use
  Company Number: US-BRISTOL-MYERS SQUIBB COMPANY-14231161

PATIENT
  Age: 45 Year
  Sex: Female

DRUGS (6)
  1. ABILIFY [Suspect]
     Indication: MENTAL RETARDATION
     Route: 048
     Dates: start: 20080421, end: 20080521
  2. ABILIFY [Suspect]
     Indication: ABNORMAL BEHAVIOUR
     Route: 048
     Dates: start: 20080421, end: 20080521
  3. ABILIFY [Suspect]
     Indication: AGITATION
     Route: 048
     Dates: start: 20080421, end: 20080521
  4. CELEXA [Concomitant]
  5. ATIVAN [Concomitant]
  6. ZEGERID [Concomitant]

REACTIONS (3)
  - EXTRAPYRAMIDAL DISORDER [None]
  - LUNG NEOPLASM [None]
  - NEUROLEPTIC MALIGNANT SYNDROME [None]
